FAERS Safety Report 24786345 (Version 4)
Quarter: 2025Q2

REPORT INFORMATION
  Report Type: Report from Study
  Country: US (occurrence: US)
  Receive Date: 20241230
  Receipt Date: 20250523
  Transmission Date: 20250717
  Serious: Yes (Other)
  Sender: ACADIA PHARMACEUTICALS
  Company Number: US-ACADIA PHARMACEUTICALS INC.-ACA-2024-TRF-008754

PATIENT
  Sex: Female

DRUGS (3)
  1. DAYBUE [Suspect]
     Active Substance: TROFINETIDE
     Indication: Rett syndrome
     Dosage: 30 MILLILITER, BID
     Route: 048
  2. DAYBUE [Suspect]
     Active Substance: TROFINETIDE
     Dosage: 30 MILLILITER, BID
     Route: 048
  3. DAYBUE [Suspect]
     Active Substance: TROFINETIDE
     Dosage: 30 MILLILITER, BID
     Route: 048

REACTIONS (9)
  - Pneumonia [Recovered/Resolved]
  - Ear infection [Recovered/Resolved]
  - Ear infection [Recovered/Resolved]
  - Pharyngitis streptococcal [Recovered/Resolved]
  - Hand-foot-and-mouth disease [Recovered/Resolved]
  - Ear canal erythema [Recovering/Resolving]
  - Gastrointestinal infection [Recovering/Resolving]
  - Product dose omission issue [Recovered/Resolved]
  - Product storage error [Unknown]
